FAERS Safety Report 6082247-4 (Version None)
Quarter: 2009Q1

REPORT INFORMATION
  Report Type: 
  Country: None (occurrence: None)
  Receive Date: 20090218
  Receipt Date: 20090210
  Transmission Date: 20090719
  Serious: Yes (Hospitalization)
  Sender: FDA-Public Use
  Company Number: US-BAYER-200910425BCC

PATIENT
  Age: 53 Year
  Sex: Female
  Weight: 102 kg

DRUGS (1)
  1. ALKA SELTZER PLUS EFFERVESCENT COLD TABLETS [Suspect]
     Indication: SINUS CONGESTION
     Dosage: AS USED: 5 DF
     Dates: start: 19890101

REACTIONS (4)
  - LIP DISCOLOURATION [None]
  - NAIL DISCOLOURATION [None]
  - ULCER HAEMORRHAGE [None]
  - YELLOW SKIN [None]
